FAERS Safety Report 24714444 (Version 4)
Quarter: 2025Q1

REPORT INFORMATION
  Report Type: Spontaneous
  Country: JP (occurrence: JP)
  Receive Date: 20241209
  Receipt Date: 20250127
  Transmission Date: 20250408
  Serious: Yes (Death)
  Sender: GLAXOSMITHKLINE
  Company Number: JP-GSKJP-JP2024JPN152829AA

PATIENT

DRUGS (1)
  1. DAPRODUSTAT [Suspect]
     Active Substance: DAPRODUSTAT
     Indication: Nephrogenic anaemia
     Route: 048
     Dates: start: 202304

REACTIONS (1)
  - Marasmus [Fatal]
